FAERS Safety Report 10080958 (Version 1)
Quarter: 2014Q2

REPORT INFORMATION
  Report Type: Spontaneous
  Country: FR (occurrence: FR)
  Receive Date: 20140416
  Receipt Date: 20140416
  Transmission Date: 20141212
  Serious: Yes (Hospitalization)
  Sender: FDA-Public Use
  Company Number: FR-009507513-1404FRA008712

PATIENT
  Age: 72 Year
  Sex: Female

DRUGS (1)
  1. INTRONA [Suspect]
     Dosage: 3000000 IU, TIW
     Route: 058
     Dates: start: 20140128, end: 20140303

REACTIONS (2)
  - Hepatocellular injury [Unknown]
  - Cholestasis [Unknown]
